FAERS Safety Report 8122172-8 (Version None)
Quarter: 2012Q1

REPORT INFORMATION
  Report Type: 
  Country: None (occurrence: None)
  Receive Date: 20120208
  Receipt Date: 20120123
  Transmission Date: 20120608
  Serious: Yes (Death, Other)
  Sender: FDA-Public Use
  Company Number: NO-ROCHE-656209

PATIENT

DRUGS (7)
  1. WARFARIN SODIUM [Suspect]
     Indication: DEEP VEIN THROMBOSIS
     Dosage: DISCONTINUED BEFORE CDT
     Route: 048
  2. HEPARIN [Suspect]
     Dosage: INITIATED AFTE I H AFTER REMOVAL OF CATHETER
     Route: 058
  3. HEPARIN [Suspect]
     Indication: DEEP VEIN THROMBOSIS
     Dosage: DISCONTINUED BEFORE CDT
     Route: 058
  4. WARFARIN SODIUM [Suspect]
     Route: 048
  5. HEPARIN SODIUM [Suspect]
     Indication: DEEP VEIN THROMBOSIS
     Dosage: 5000 U
     Route: 040
  6. HEPARIN SODIUM [Suspect]
     Dosage: CONTINUOUS INFUSION OF 15 U/KG/H
     Route: 040
  7. ALTEPLASE [Suspect]
     Indication: DEEP VEIN THROMBOSIS
     Route: 042

REACTIONS (8)
  - HAEMATOMA [None]
  - HAEMORRHAGE [None]
  - ABDOMINAL WALL HAEMATOMA [None]
  - PUNCTURE SITE INFECTION [None]
  - SUBCUTANEOUS HAEMATOMA [None]
  - OSTEOMYELITIS [None]
  - NEOPLASM MALIGNANT [None]
  - COMPARTMENT SYNDROME [None]
